FAERS Safety Report 7817217 (Version 7)
Quarter: 2013Q1

REPORT INFORMATION
  Report Type: Report from Study
  Country: NL (occurrence: NL)
  Receive Date: 20110217
  Receipt Date: 20130124
  Transmission Date: 20140127
  Serious: Yes (Hospitalization)
  Sender: FDA-Public Use
  Company Number: NL-JNJFOC-20110203218

PATIENT
  Age: 16 Year
  Sex: Male
  Weight: 57.5 kg

DRUGS (3)
  1. REMICADE [Suspect]
     Indication: CROHN^S DISEASE
     Route: 042
     Dates: start: 20091113, end: 20101207
  2. HUMIRA [Suspect]
     Indication: CROHN^S DISEASE
     Dates: start: 20101222
  3. PREDNISONE [Concomitant]
     Route: 048

REACTIONS (1)
  - Crohn^s disease [Recovered/Resolved]
